FAERS Safety Report 6065371-1 (Version None)
Quarter: 2009Q1

REPORT INFORMATION
  Report Type: 
  Country: None (occurrence: None)
  Receive Date: 20090204
  Receipt Date: 20090130
  Transmission Date: 20090719
  Serious: Yes (Hospitalization)
  Sender: FDA-Public Use
  Company Number: ES-PFIZER INC-2008154990

PATIENT

DRUGS (9)
  1. PHENYTOIN SODIUM CAP [Suspect]
     Indication: EPILEPSY
     Dosage: 100 MG, UNK
     Route: 048
     Dates: start: 20070901, end: 20081018
  2. ESCITALOPRAM [Interacting]
     Indication: DEPRESSION
     Dosage: UNK
     Route: 048
     Dates: start: 20080601, end: 20081016
  3. LORMETAZEPAM [Concomitant]
     Dosage: UNK
     Route: 048
  4. PANTOPRAZOL [Concomitant]
     Dosage: UNK
     Route: 048
     Dates: start: 20071001
  5. ALDACTONE [Concomitant]
     Dosage: 100 MG, UNK
     Route: 048
     Dates: start: 20071001
  6. DUPHALAC [Concomitant]
     Indication: CONSTIPATION
     Dosage: UNK
     Route: 048
     Dates: start: 20080401
  7. EMPORTAL [Concomitant]
     Indication: PROPHYLAXIS
     Dosage: UNK
     Route: 048
     Dates: start: 20080401
  8. LOSARTAN POTASSIUM AND HYDROCHLOROTHIAZIDE [Concomitant]
     Indication: HYPERTENSION
     Dosage: UNK
     Route: 048
     Dates: start: 20080401
  9. URBAL [Concomitant]
     Dosage: UNK
     Route: 048
     Dates: start: 20071001

REACTIONS (12)
  - AGITATION [None]
  - AMNESIA [None]
  - ANTICONVULSANT DRUG LEVEL ABOVE THERAPEUTIC [None]
  - ASTHENIA [None]
  - DISORIENTATION [None]
  - DISTURBANCE IN SOCIAL BEHAVIOUR [None]
  - DRUG INTERACTION [None]
  - DYSARTHRIA [None]
  - SOMNOLENCE [None]
  - THERAPEUTIC AGENT TOXICITY [None]
  - TREATMENT NONCOMPLIANCE [None]
  - TREMOR [None]
